FAERS Safety Report 13587420 (Version 1)
Quarter: 2017Q2

REPORT INFORMATION
  Report Type: Report from Study
  Country: US (occurrence: US)
  Receive Date: 20170526
  Receipt Date: 20170526
  Transmission Date: 20170830
  Serious: Yes (Hospitalization)
  Sender: FDA-Public Use
  Company Number: US-ACTELION-A-NJ2017-151533

PATIENT
  Age: 43 Year
  Sex: Female
  Weight: 58.96 kg

DRUGS (17)
  1. METOPROLOL. [Concomitant]
     Active Substance: METOPROLOL
     Dosage: 100 MG, UNK
  2. PRED [Concomitant]
     Active Substance: PREDNISONE
     Dosage: 5 MG, UNK
  3. WARFARIN [Concomitant]
     Active Substance: WARFARIN
  4. SENSIPAR [Concomitant]
     Active Substance: CINACALCET HYDROCHLORIDE
     Dosage: 30 MG, UNK
     Route: 048
  5. PLAQUENIL [Concomitant]
     Active Substance: HYDROXYCHLOROQUINE SULFATE
     Dosage: 200 MG, BID
  6. SEVELAMER [Concomitant]
     Active Substance: SEVELAMER
     Dosage: 800 MG, UNK
  7. LOTREL [Concomitant]
     Active Substance: AMLODIPINE BESYLATE\BENAZEPRIL HYDROCHLORIDE
     Dosage: 10/40 MG
  8. NEXIUM [Concomitant]
     Active Substance: ESOMEPRAZOLE MAGNESIUM
     Dosage: 40 MG, UNK
  9. LETAIRIS [Concomitant]
     Active Substance: AMBRISENTAN
     Dosage: 10 MG, UNK
     Route: 048
  10. ALBUTEROL. [Concomitant]
     Active Substance: ALBUTEROL
     Dosage: UNK, PRN
  11. ASA [Concomitant]
     Active Substance: ASPIRIN
     Dosage: 81 MG, QD
  12. MIRENA [Concomitant]
     Active Substance: LEVONORGESTREL
  13. UPTRAVI [Suspect]
     Active Substance: SELEXIPAG
     Dosage: 400 MCG, BID
     Route: 048
  14. CLONIDINE. [Concomitant]
     Active Substance: CLONIDINE
     Dosage: 0.2 MG, Q12HRS
  15. UPTRAVI [Suspect]
     Active Substance: SELEXIPAG
     Indication: PULMONARY HYPERTENSION
     Dosage: 600 MCG, BID
     Route: 048
  16. MIRALAX [Concomitant]
     Active Substance: POLYETHYLENE GLYCOL 3350
  17. SELEXIPAG [Concomitant]
     Active Substance: SELEXIPAG
     Dosage: 400 MCG, UNK

REACTIONS (12)
  - Vulvovaginal burning sensation [Recovered/Resolved]
  - Urticaria [Recovered/Resolved]
  - Vaginal exfoliation [Recovered/Resolved]
  - Flushing [Unknown]
  - Drug hypersensitivity [Unknown]
  - Erythema [Recovered/Resolved]
  - Blister [Recovered/Resolved]
  - Cough [Unknown]
  - Stomatitis [Recovered/Resolved]
  - Lip blister [Recovered/Resolved]
  - Influenza [Unknown]
  - Contrast media allergy [Recovered/Resolved]

NARRATIVE: CASE EVENT DATE: 20170303
